FAERS Safety Report 13191720 (Version 1)
Quarter: 2017Q1

REPORT INFORMATION
  Report Type: Spontaneous
  Country: US (occurrence: US)
  Receive Date: 20170207
  Receipt Date: 20170207
  Transmission Date: 20170428
  Serious: Yes (Hospitalization, Other)
  Sender: FDA-Public Use
  Company Number: US-AUROBINDO-AUR-APL-2017-29459

PATIENT
  Age: 21 Year
  Sex: Female

DRUGS (3)
  1. AZTREONAM. [Concomitant]
     Active Substance: AZTREONAM
     Indication: PRODUCT USED FOR UNKNOWN INDICATION
     Route: 065
  2. HYDROMORPHONE [Suspect]
     Active Substance: HYDROMORPHONE
     Indication: PRODUCT USED FOR UNKNOWN INDICATION
     Dosage: UNK
     Route: 042
  3. DAPTOMYCIN. [Concomitant]
     Active Substance: DAPTOMYCIN
     Indication: PRODUCT USED FOR UNKNOWN INDICATION
     Route: 065

REACTIONS (17)
  - Productive cough [Unknown]
  - Injection site erythema [Unknown]
  - Tachycardia [Unknown]
  - Atelectasis [None]
  - Sinus tachycardia [Unknown]
  - Candida infection [Unknown]
  - Bacteraemia [Unknown]
  - Dyspnoea [Unknown]
  - Respiratory distress [Unknown]
  - Asthenia [Unknown]
  - Cronobacter infection [Unknown]
  - Staphylococcal infection [Unknown]
  - Drug abuse [Unknown]
  - Sepsis [Unknown]
  - Pyrexia [Unknown]
  - Chest discomfort [Unknown]
  - Incorrect route of drug administration [Unknown]
